FAERS Safety Report 11389048 (Version 2)
Quarter: 2015Q3

REPORT INFORMATION
  Report Type: Spontaneous
  Country: US (occurrence: US)
  Receive Date: 20150817
  Receipt Date: 20150819
  Transmission Date: 20151125
  Serious: Yes (Hospitalization, Disabling, Other)
  Sender: FDA-Public Use
  Company Number: US-009507513-1207USA00009

PATIENT
  Sex: Female

DRUGS (4)
  1. FOSAMAX [Suspect]
     Active Substance: ALENDRONATE SODIUM
     Indication: BONE DENSITY DECREASED
     Dosage: 70 MG, QW
     Route: 048
     Dates: start: 1997, end: 200807
  2. FOSAMAX [Suspect]
     Active Substance: ALENDRONATE SODIUM
     Indication: OSTEOPENIA
  3. CALCIUM (UNSPECIFIED) (+) VITAMIN D (UNSPECIFIED) [Concomitant]
     Active Substance: CALCIUM CARBONATE\VITAMIN D
     Dosage: 600 MG, QD
     Route: 048
     Dates: start: 2001
  4. ALENDRONATE SODIUM. [Suspect]
     Active Substance: ALENDRONATE SODIUM
     Indication: BONE DENSITY DECREASED
     Dosage: 70 MG, QW
     Route: 048
     Dates: start: 200807, end: 20091102

REACTIONS (17)
  - Arthritis [Unknown]
  - Intervertebral disc degeneration [Unknown]
  - Hypocalcaemia [Unknown]
  - Uterine disorder [Unknown]
  - Sinus disorder [Unknown]
  - Haemorrhagic anaemia [Unknown]
  - Hyponatraemia [Unknown]
  - Mitral valve prolapse [Unknown]
  - Hypersensitivity [Unknown]
  - Femur fracture [Unknown]
  - Hiatus hernia [Unknown]
  - Intervertebral disc protrusion [Unknown]
  - Dyslipidaemia [Unknown]
  - Seasonal allergy [Unknown]
  - Streptococcal bacteraemia [Unknown]
  - Bone disorder [Unknown]
  - Hypertension [Unknown]

NARRATIVE: CASE EVENT DATE: 1998
